FAERS Safety Report 11909165 (Version 1)
Quarter: 2016Q1

REPORT INFORMATION
  Report Type: Spontaneous
  Country: US (occurrence: US)
  Receive Date: 20160112
  Receipt Date: 20160112
  Transmission Date: 20160526
  Serious: No
  Sender: FDA-Public Use
  Company Number: US-TEVA-624383ACC

PATIENT
  Age: 29 Year
  Sex: Female

DRUGS (1)
  1. PARAGARD T 380A [Suspect]
     Active Substance: COPPER
     Indication: CONTRACEPTION
     Dates: end: 20151209

REACTIONS (5)
  - Menorrhagia [Unknown]
  - Device expulsion [Recovered/Resolved]
  - Embedded device [Recovered/Resolved]
  - Vaginal haemorrhage [Unknown]
  - Menstruation irregular [Unknown]

NARRATIVE: CASE EVENT DATE: 201507
